FAERS Safety Report 12061420 (Version 1)
Quarter: 2016Q1

REPORT INFORMATION
  Report Type: Spontaneous
  Country: US (occurrence: US)
  Receive Date: 20160210
  Receipt Date: 20160210
  Transmission Date: 20160526
  Serious: No
  Sender: FDA-Public Use
  Company Number: US-ALLERGAN-1418122US

PATIENT
  Sex: Female

DRUGS (3)
  1. XEOMIN [Concomitant]
     Active Substance: INCOBOTULINUMTOXINA
     Indication: BRUXISM
     Dosage: UNK UNK, SINGLE
  2. MYOBLOC [Concomitant]
     Active Substance: RIMABOTULINUMTOXINB
  3. BOTOX [Suspect]
     Active Substance: ONABOTULINUMTOXINA
     Indication: BRUXISM
     Dosage: UNK, SINGLE

REACTIONS (2)
  - Off label use [Unknown]
  - Drug ineffective [Unknown]
